FAERS Safety Report 8613276-1 (Version None)
Quarter: 2012Q3

REPORT INFORMATION
  Report Type: 
  Country: None (occurrence: None)
  Receive Date: 20120822
  Receipt Date: 20120803
  Transmission Date: 20120928
  Serious: Yes (Other)
  Sender: FDA-Public Use
  Company Number: JP-009507513-1208JPN003903

PATIENT

DRUGS (1)
  1. JANUVIA [Suspect]
     Route: 048
     Dates: start: 20120701

REACTIONS (2)
  - MUSCULAR WEAKNESS [None]
  - BLOOD CREATINE PHOSPHOKINASE INCREASED [None]
